FAERS Safety Report 11295348 (Version 1)
Quarter: 2015Q3

REPORT INFORMATION
  Report Type: Spontaneous
  Country: US (occurrence: None)
  Receive Date: 20150722
  Receipt Date: 20150722
  Transmission Date: 20151125
  Serious: No
  Sender: FDA-Public Use
  Company Number: None

PATIENT
  Sex: Female

DRUGS (1)
  1. STELARA [Suspect]
     Active Substance: USTEKINUMAB
     Indication: RHEUMATOID ARTHRITIS
     Dosage: EVERY 12 WEEKS, SQ
     Route: 058
     Dates: start: 20150709, end: 20150720

REACTIONS (2)
  - Insomnia [None]
  - Lymphadenopathy [None]
